APPROVED DRUG PRODUCT: DEFERASIROX
Active Ingredient: DEFERASIROX
Strength: 125MG
Dosage Form/Route: TABLET, FOR SUSPENSION;ORAL
Application: A209782 | Product #001 | TE Code: AB
Applicant: SUN PHARMACEUTICAL INDUSTRIES LTD
Approved: Nov 20, 2019 | RLD: No | RS: No | Type: RX